FAERS Safety Report 25778854 (Version 1)
Quarter: 2025Q3

REPORT INFORMATION
  Report Type: Spontaneous
  Country: US (occurrence: US)
  Receive Date: 20250909
  Receipt Date: 20250909
  Transmission Date: 20251021
  Serious: No
  Sender: ELI LILLY AND COMPANY
  Company Number: US-ELI_LILLY_AND_COMPANY-US202508027348

PATIENT
  Age: 59 Year
  Sex: Male

DRUGS (3)
  1. ZEPBOUND [Suspect]
     Active Substance: TIRZEPATIDE
     Indication: Glucose tolerance impaired
     Route: 065
     Dates: start: 202505
  2. DUPIXENT [Suspect]
     Active Substance: DUPILUMAB
     Indication: Nasal polyps
     Dosage: 300 MG, 2/W
     Route: 058
     Dates: start: 202504
  3. DUPIXENT [Suspect]
     Active Substance: DUPILUMAB
     Dosage: 300 MG, MONTHLY (1/M)
     Route: 058
     Dates: start: 20250715

REACTIONS (3)
  - Weight decreased [Unknown]
  - Diabetes mellitus [Unknown]
  - Off label use [Unknown]
